FAERS Safety Report 17680834 (Version 1)
Quarter: 2020Q2

REPORT INFORMATION
  Report Type: Report from Study
  Country: CZ (occurrence: CZ)
  Receive Date: 20200417
  Receipt Date: 20200417
  Transmission Date: 20200714
  Serious: Yes (Hospitalization)
  Sender: FDA-Public Use
  Company Number: CZ-AMGEN-CZECT2020000498

PATIENT
  Age: 68 Year
  Sex: Female
  Weight: 105 kg

DRUGS (14)
  1. LOZAP [LOSARTAN POTASSIUM] [Concomitant]
     Dosage: 50 MILLIGRAM
     Route: 048
     Dates: start: 2019
  2. PHYSIOLOGICAL SALINE SOLUTION [Concomitant]
     Active Substance: SODIUM CHLORIDE
     Dosage: 250 MILLILITER
     Dates: start: 20190717
  3. CARFILZOMIB [Suspect]
     Active Substance: CARFILZOMIB
     Indication: PLASMA CELL MYELOMA
     Dosage: 59 MILLIGRAM, PER CHEMO REGIM
     Route: 042
     Dates: start: 20190717
  4. LENALIDOMIDE [Concomitant]
     Active Substance: LENALIDOMIDE
     Indication: PLASMA CELL MYELOMA
     Dosage: 10 MILLIGRAM
     Dates: start: 20190717
  5. FRAXIPARINE [Concomitant]
     Active Substance: NADROPARIN CALCIUM
     Dosage: 1 MILLILITER
     Route: 058
     Dates: start: 20190717
  6. DEXAMETHASONE. [Suspect]
     Active Substance: DEXAMETHASONE
     Indication: PLASMA CELL MYELOMA
     Dosage: 10-20 MILLIGRAM, PER CHEMO REGIM
     Route: 065
     Dates: start: 20190717
  7. ZOREM [AMLODIPINE BESILATE] [Concomitant]
     Dosage: 5 MILLIGRAM
     Route: 048
     Dates: start: 2004
  8. RIVOTRIL [Concomitant]
     Active Substance: CLONAZEPAM
     Dosage: 0.5 MILLIGRAM
     Route: 048
     Dates: start: 20190814
  9. ZOFRAN [Concomitant]
     Active Substance: ONDANSETRON HYDROCHLORIDE
     Dosage: 8 MILLIGRAM
     Route: 042
     Dates: start: 20190717
  10. BETALOC ZOK [Concomitant]
     Active Substance: METOPROLOL SUCCINATE
     Dosage: 200 MILLIGRAM
     Route: 048
     Dates: start: 2004
  11. ZINNAT [CEFUROXIME AXETIL] [Concomitant]
     Active Substance: CEFUROXIME
     Dosage: 500 MILLIGRAM
     Route: 048
     Dates: start: 20191002, end: 20191006
  12. LEXAURIN [Concomitant]
     Active Substance: BROMAZEPAM
     Dosage: 3 MILLIGRAM
     Route: 048
     Dates: start: 20191120
  13. ZOVIRAX [Concomitant]
     Active Substance: ACYCLOVIR
     Dosage: 400 MILLIGRAM
     Dates: start: 20190717
  14. HELICID [OMEPRAZOLE] [Concomitant]
     Active Substance: OMEPRAZOLE
     Dosage: 20 MILLIGRAM
     Route: 048
     Dates: start: 20170412

REACTIONS (1)
  - Arrhythmia [Recovered/Resolved]

NARRATIVE: CASE EVENT DATE: 20200102
